FAERS Safety Report 12563994 (Version 3)
Quarter: 2019Q1

REPORT INFORMATION
  Report Type: Report from Study
  Country: KR (occurrence: KR)
  Receive Date: 20160718
  Receipt Date: 20190213
  Transmission Date: 20190417
  Serious: Yes (Hospitalization)
  Sender: FDA-Public Use
  Company Number: KR-ROCHE-1462566

PATIENT
  Age: 66 Year
  Sex: Male
  Weight: 59.3 kg

DRUGS (41)
  1. MAGNESIUM OXIDE. [Concomitant]
     Active Substance: MAGNESIUM OXIDE
     Indication: CONSTIPATION
     Route: 048
     Dates: start: 20140730
  2. GABAPENTIN. [Concomitant]
     Active Substance: GABAPENTIN
     Indication: NECK PAIN
     Route: 048
     Dates: start: 20140828, end: 20140927
  3. SITAGLIPTIN [Concomitant]
     Active Substance: SITAGLIPTIN
     Indication: DIABETES MELLITUS
     Dosage: DOSE REPORTED AS 1 TABLET.
     Route: 048
     Dates: start: 2004
  4. RANITIDINE. [Concomitant]
     Active Substance: RANITIDINE
     Indication: STOMATITIS
     Route: 042
     Dates: start: 20140829, end: 20140830
  5. MIDAZOLAM HYDROCHLORIDE. [Concomitant]
     Active Substance: MIDAZOLAM HYDROCHLORIDE
     Indication: SEDATION
     Route: 042
     Dates: start: 20140915, end: 20140915
  6. BUDESONIDE. [Concomitant]
     Active Substance: BUDESONIDE
     Indication: PNEUMONIA
     Route: 055
     Dates: start: 20140926, end: 20140927
  7. LANSOPRAZOLE. [Concomitant]
     Active Substance: LANSOPRAZOLE
     Indication: STOMATITIS
     Route: 048
     Dates: start: 20140828, end: 20140927
  8. ETOMIDATE. [Concomitant]
     Active Substance: ETOMIDATE
     Indication: SEDATION
     Route: 042
     Dates: start: 20140915, end: 20140915
  9. LEVOFLOXACIN. [Concomitant]
     Active Substance: LEVOFLOXACIN
     Indication: PNEUMONIA
     Route: 042
     Dates: start: 20140918, end: 20140922
  10. CHLORHEXIDINE [Concomitant]
     Active Substance: CHLORHEXIDINE
     Indication: STOMATITIS
     Dosage: ROUTE:OTHER
     Route: 050
     Dates: start: 20140915
  11. PETHIDINE [Concomitant]
     Active Substance: MEPERIDINE
     Indication: NECK PAIN
     Route: 042
     Dates: start: 20140918, end: 20140918
  12. CODEINE PHOSPHATE [Concomitant]
     Active Substance: CODEINE PHOSPHATE
     Indication: NECK PAIN
     Route: 048
     Dates: start: 20140730
  13. FENTANYL. [Concomitant]
     Active Substance: FENTANYL
     Route: 062
     Dates: start: 20140828, end: 20140828
  14. GLIMEPIRIDE/METFORMIN HYDROCHLORIDE [Concomitant]
     Indication: DIABETES MELLITUS
     Dosage: DOSE REPORTED AS 2 TABLETS.
     Route: 048
     Dates: start: 2004
  15. AUGMENTIN [Concomitant]
     Active Substance: AMOXICILLIN\CLAVULANATE POTASSIUM
     Indication: INFECTION
     Route: 042
     Dates: start: 20140829, end: 20140830
  16. HUMULIN NOS [Concomitant]
     Active Substance: INSULIN HUMAN
     Indication: HYPERGLYCAEMIA
     Route: 042
     Dates: start: 20140918, end: 20140925
  17. BISACODYL. [Concomitant]
     Active Substance: BISACODYL
     Dosage: ROUTE:PER RECTUM
     Route: 054
     Dates: start: 20140922, end: 20140925
  18. FAMOTIDINE. [Concomitant]
     Active Substance: FAMOTIDINE
     Indication: STOMATITIS
     Route: 042
     Dates: start: 20140915
  19. MORPHINE [Concomitant]
     Active Substance: MORPHINE
     Indication: NECK PAIN
     Route: 042
     Dates: start: 20140914, end: 20140927
  20. HALOPERIDOL. [Concomitant]
     Active Substance: HALOPERIDOL
     Indication: DELIRIUM
     Route: 042
     Dates: start: 20140918, end: 20140918
  21. LACTULOSE. [Concomitant]
     Active Substance: LACTULOSE
     Indication: CONSTIPATION
     Route: 048
     Dates: start: 20140828, end: 20140927
  22. ENOXAPARIN [Concomitant]
     Active Substance: ENOXAPARIN
     Indication: THROMBOSIS
     Route: 058
     Dates: start: 20140917
  23. OXYCODONE HYDROCHLORIDE. [Concomitant]
     Active Substance: OXYCODONE HYDROCHLORIDE
     Indication: NECK PAIN
     Route: 048
     Dates: start: 20140828
  24. REMIFENTANIL [Concomitant]
     Active Substance: REMIFENTANIL
     Indication: NECK PAIN
     Route: 042
     Dates: start: 20140915, end: 20140917
  25. SULFAMETHOXAZOLE/TRIMETHOPRIM [Concomitant]
     Active Substance: SULFAMETHOXAZOLE\TRIMETHOPRIM
     Indication: INFECTION
     Route: 048
     Dates: start: 20140831, end: 20140926
  26. ENCOVER [Concomitant]
     Indication: DECREASED APPETITE
     Route: 048
     Dates: start: 20140828, end: 20140927
  27. RANITIDINE. [Concomitant]
     Active Substance: RANITIDINE
     Route: 042
     Dates: start: 20140914, end: 20140914
  28. FENTANYL. [Concomitant]
     Active Substance: FENTANYL
     Indication: NECK PAIN
     Route: 062
     Dates: start: 20140828, end: 20140828
  29. MAXICLAN [Concomitant]
     Indication: INFECTION
     Route: 048
     Dates: start: 20140831, end: 20140909
  30. IPRATROPIUM [Concomitant]
     Active Substance: IPRATROPIUM
     Indication: PNEUMONIA
     Route: 055
     Dates: start: 20140915, end: 20140915
  31. ACETAMINOPHEN. [Concomitant]
     Active Substance: ACETAMINOPHEN
     Indication: NECK PAIN
     Dosage: DOSE REPORTED AS 2 CAPSULES.
     Route: 048
     Dates: start: 20140730
  32. FENTANYL. [Concomitant]
     Active Substance: FENTANYL
     Route: 062
     Dates: start: 20140916
  33. VECURONIUM [Concomitant]
     Active Substance: VECURONIUM BROMIDE
     Indication: SEDATION
     Route: 042
     Dates: start: 20140915, end: 20140915
  34. ACETYLCYSTEINE. [Concomitant]
     Active Substance: ACETYLCYSTEINE
     Indication: PNEUMONIA
     Route: 055
     Dates: start: 20140926, end: 20140927
  35. ATEZOLIZUMAB. [Suspect]
     Active Substance: ATEZOLIZUMAB
     Indication: NON-SMALL CELL LUNG CANCER
     Dosage: DOSE PER PROTOCOL.  MOST RECENT DOSE PRIOR TO SAE WAS TAKEN ON 28/AUG/2014.
     Route: 042
     Dates: start: 20140828
  36. MEGESTROL [Concomitant]
     Active Substance: MEGESTROL
     Indication: DECREASED APPETITE
     Route: 048
     Dates: start: 20140730
  37. IBUPROFEN. [Concomitant]
     Active Substance: IBUPROFEN
     Indication: NECK PAIN
     Dosage: DOSE REPORTED AS 2 CAPSULES.
     Route: 048
     Dates: start: 20140730
  38. RANITIDINE. [Concomitant]
     Active Substance: RANITIDINE
     Route: 048
     Dates: start: 20140831, end: 20140913
  39. NALOXONE [Concomitant]
     Active Substance: NALOXONE
     Route: 042
     Dates: start: 20140918, end: 20140918
  40. SUCCINYLCHOLINE [Concomitant]
     Active Substance: SUCCINYLCHOLINE
     Indication: SEDATION
     Route: 042
     Dates: start: 20140915, end: 20140915
  41. SMX/TMP [Concomitant]
     Active Substance: SULFAMETHOXAZOLE\TRIMETHOPRIM
     Indication: INFECTION
     Dosage: 400MG/80MG
     Route: 048
     Dates: start: 20140831, end: 20140926

REACTIONS (1)
  - Localised oedema [Recovered/Resolved]

NARRATIVE: CASE EVENT DATE: 20140829
